FAERS Safety Report 12613843 (Version 5)
Quarter: 2018Q1

REPORT INFORMATION
  Report Type: Spontaneous
  Country: US (occurrence: US)
  Receive Date: 20160802
  Receipt Date: 20180123
  Transmission Date: 20180508
  Serious: Yes (Other)
  Sender: FDA-Public Use
  Company Number: US-PFIZER INC-2014264960

PATIENT
  Age: 69 Year
  Sex: Male
  Weight: 86.18 kg

DRUGS (28)
  1. MUCINEX [Concomitant]
     Active Substance: GUAIFENESIN
     Indication: SINUS DISORDER
  2. DESYREL [Concomitant]
     Active Substance: TRAZODONE HYDROCHLORIDE
     Indication: SLEEP DISORDER
     Dosage: 50 MG, 1X/DAY (AT NIGHT)
     Route: 048
  3. TOPICORT [Concomitant]
     Active Substance: DESOXIMETASONE
     Dosage: UNK, AS NEEDED (1 APPLICATION 2 TIMES DAILY)
     Route: 061
  4. ADVIL [Concomitant]
     Active Substance: IBUPROFEN
     Indication: PAIN
     Dosage: 400 MG, AS NEEDED (EVERY 6 HOURS)
     Route: 048
  5. PANTOPRAZOLE SODIUM. [Concomitant]
     Active Substance: PANTOPRAZOLE SODIUM
     Indication: GASTRIC DISORDER
     Dosage: 40 MG, 1X/DAY (ONCE IN THE MORNING)
     Route: 048
  6. LORATADINE. [Concomitant]
     Active Substance: LORATADINE
     Indication: ANTIALLERGIC THERAPY
     Dosage: 10 MG, 1X/DAY (ONCE IN THE MORNING)
     Route: 048
  7. PROTONIX [Concomitant]
     Active Substance: PANTOPRAZOLE SODIUM
     Indication: GASTRIC DISORDER
     Dosage: 40 MG, 1X/DAY (EVERY MORNING AT 6:30 AM BEFORE BREAKFAST)
     Route: 048
  8. MOBIC [Concomitant]
     Active Substance: MELOXICAM
     Indication: PAIN
     Dosage: 15 MG, AS NEEDED (EVERY 24 HOURS)
     Route: 048
  9. PAROXETINE. [Concomitant]
     Active Substance: PAROXETINE
     Indication: GASTRIC DISORDER
     Dosage: 40 MG, 1X/DAY (ONCE IN THE MORNING)
  10. DESOWEN [Concomitant]
     Active Substance: DESONIDE
     Indication: PRURITUS
     Dosage: UNK, AS NEEDED (1 APPLICATION, 2 TIMES DAILY)
     Route: 061
  11. VIAGRA [Concomitant]
     Active Substance: SILDENAFIL CITRATE
     Indication: ERECTILE DYSFUNCTION
     Dosage: 100 MG, AS NEEDED (EVERY 24 HOURS)
     Route: 048
  12. VIAGRA [Concomitant]
     Active Substance: SILDENAFIL CITRATE
     Dosage: UNK UNK, 1X/DAY
     Route: 048
  13. MUCINEX [Concomitant]
     Active Substance: GUAIFENESIN
     Indication: HYPERSENSITIVITY
     Dosage: 1200 MG, 2X/DAY (600MG, 12 HR TABLET)
     Route: 048
  14. PAXIL [Concomitant]
     Active Substance: PAROXETINE HYDROCHLORIDE
     Indication: GASTRIC DISORDER
  15. TYLENOL [Concomitant]
     Active Substance: ACETAMINOPHEN
     Indication: PAIN
     Dosage: 1000 MG, AS NEEDED (EVERY 6 HOURS)
     Route: 048
  16. TRAZODONE [Concomitant]
     Active Substance: TRAZODONE HYDROCHLORIDE
     Indication: SLEEP DISORDER
     Dosage: 50 MG, 1X/DAY (AT NIGHT)
     Route: 048
  17. MOBIC [Concomitant]
     Active Substance: MELOXICAM
     Indication: ARTHRITIS
  18. LYRICA [Suspect]
     Active Substance: PREGABALIN
     Indication: HERPES ZOSTER
     Dosage: 200 MG, 3X/DAY
     Route: 048
     Dates: start: 20161114
  19. CLARITIN [Concomitant]
     Active Substance: LORATADINE
     Indication: HYPERSENSITIVITY
     Dosage: 10 MG, DAILY
     Route: 048
  20. NIZORAL [Concomitant]
     Active Substance: KETOCONAZOLE
     Indication: PSORIASIS
     Dosage: 2%, TWO TIMES DAILY AS NEEDED
     Route: 061
  21. VIAGRA [Concomitant]
     Active Substance: SILDENAFIL CITRATE
     Dosage: 100 MG, AS NEEDED (EVERY 24 HOURS)
     Route: 048
     Dates: start: 20161114
  22. NASACORT [Concomitant]
     Active Substance: TRIAMCINOLONE ACETONIDE
     Indication: SINUS DISORDER
     Dosage: 1 SPRAY PER EACH NOSTRIL, 1X/DAY AT NIGHT
     Route: 045
  23. PAXIL [Concomitant]
     Active Substance: PAROXETINE HYDROCHLORIDE
     Indication: ANXIETY
     Dosage: 40 MG, DAILY (EVERY MORNING)
     Route: 048
  24. ANTIVERT [Concomitant]
     Active Substance: MECLIZINE HYDROCHLORIDE
     Dosage: 25 MG, AS NEEDED (3 TIMES DAILY)
     Route: 048
  25. LYRICA [Suspect]
     Active Substance: PREGABALIN
     Indication: NEURALGIA
     Dosage: 200 MG, 3X/DAY
     Route: 048
     Dates: start: 2010
  26. FLONASE [Concomitant]
     Active Substance: FLUTICASONE PROPIONATE
     Dosage: UNK (50 MCG/ACTUATION NASAL SPRAY; 1 SPRAY BY NASAL ROUTE DAILY, SPRAY IN EACH NOSTRIL)
     Route: 045
  27. MOTRIN [Concomitant]
     Active Substance: IBUPROFEN
     Indication: PAIN
     Dosage: 400 MG, AS NEEDED (EVERY 6 HOURS)
     Route: 048
  28. GUAIFENESIN. [Concomitant]
     Active Substance: GUAIFENESIN
     Indication: SINUS DISORDER
     Dosage: 1200 MG, 2X/DAY (TWO 600 MG CAPSULES IN THE MORNING AND IN THE AFTERNOON)

REACTIONS (10)
  - Condition aggravated [Not Recovered/Not Resolved]
  - Pain [Unknown]
  - Weight increased [Unknown]
  - Daydreaming [Unknown]
  - Arthralgia [Unknown]
  - Drug dose omission [Not Recovered/Not Resolved]
  - Pain in extremity [Unknown]
  - Musculoskeletal stiffness [Unknown]
  - Amnesia [Not Recovered/Not Resolved]
  - Fall [Unknown]

NARRATIVE: CASE EVENT DATE: 201703
